FAERS Safety Report 5095800-1 (Version None)
Quarter: 2006Q3

REPORT INFORMATION
  Report Type: 
  Country: None (occurrence: None)
  Receive Date: 20060905
  Receipt Date: 20060811
  Transmission Date: 20061208
  Serious: Yes (Hospitalization)
  Sender: FDA-Public Use
  Company Number: JP-BRISTOL-MYERS SQUIBB COMPANY-13473327

PATIENT
  Age: 64 Year
  Sex: Male

DRUGS (5)
  1. ERBITUX [Suspect]
     Indication: COLORECTAL CANCER METASTATIC
     Route: 042
     Dates: start: 20060801, end: 20060801
  2. IRINOTECAN HCL [Suspect]
     Indication: COLORECTAL CANCER METASTATIC
     Route: 042
     Dates: start: 20060801, end: 20060801
  3. ACUATIM [Concomitant]
     Indication: ACNE
     Route: 062
     Dates: start: 20051228, end: 20060811
  4. URSO [Concomitant]
     Route: 048
     Dates: start: 20060511, end: 20060811
  5. POLARAMINE [Concomitant]
     Indication: PROPHYLAXIS
     Route: 048
     Dates: start: 20060302, end: 20060811

REACTIONS (2)
  - PNEUMONIA [None]
  - PYREXIA [None]
